FAERS Safety Report 17035496 (Version 2)
Quarter: 2019Q4

REPORT INFORMATION
  Report Type: Report from Study
  Country: IL (occurrence: IL)
  Receive Date: 20191115
  Receipt Date: 20191126
  Transmission Date: 20200122
  Serious: Yes (Hospitalization, Other)
  Sender: FDA-Public Use
  Company Number: NVSC2019IL031640

PATIENT
  Sex: Male

DRUGS (2)
  1. CARTIA [Concomitant]
     Indication: PRODUCT USED FOR UNKNOWN INDICATION
     Dosage: 100 MG
     Route: 065
  2. COSENTYX [Suspect]
     Active Substance: SECUKINUMAB
     Indication: PSORIASIS
     Dosage: 300 MG, QMO
     Route: 058
     Dates: start: 201705

REACTIONS (3)
  - Ventricular tachycardia [Recovering/Resolving]
  - Coronary artery disease [Recovering/Resolving]
  - Myocardial ischaemia [Recovering/Resolving]
